FAERS Safety Report 7690482-4 (Version None)
Quarter: 2011Q3

REPORT INFORMATION
  Report Type: 
  Country: None (occurrence: None)
  Receive Date: 20110818
  Receipt Date: 20110815
  Transmission Date: 20111222
  Serious: Yes (Other)
  Sender: FDA-Public Use
  Company Number: DK-PFIZER INC-2011187630

PATIENT
  Age: 46 Year
  Sex: Male

DRUGS (1)
  1. ZIPRASIDONE HYDROCHLORIDE [Suspect]
     Indication: SCHIZOPHRENIA
     Dates: start: 20020101

REACTIONS (3)
  - HYPERLIPIDAEMIA [None]
  - COLECTOMY [None]
  - PANCREATITIS [None]
